FAERS Safety Report 6820232-2 (Version None)
Quarter: 2010Q3

REPORT INFORMATION
  Report Type: 
  Country: None (occurrence: None)
  Receive Date: 20100707
  Receipt Date: 20100701
  Transmission Date: 20110219
  Serious: Yes (Other)
  Sender: FDA-Public Use
  Company Number: US-PFIZER INC-2010045346

PATIENT
  Sex: Female
  Weight: 107 kg

DRUGS (1)
  1. CELEBREX [Suspect]
     Indication: TENDONITIS
     Dosage: UNK
     Dates: start: 20020101

REACTIONS (4)
  - CARDIAC DISORDER [None]
  - INSOMNIA [None]
  - SURGERY [None]
  - TINNITUS [None]
